FAERS Safety Report 12585253 (Version 1)
Quarter: 2016Q3

REPORT INFORMATION
  Report Type: Spontaneous
  Country: US (occurrence: US)
  Receive Date: 20160723
  Receipt Date: 20160723
  Transmission Date: 20161109
  Serious: No
  Sender: FDA-Public Use
  Company Number: US-STALLERGENES SAS-1055447

PATIENT
  Age: 27 Year
  Sex: Male

DRUGS (2)
  1. PATADAY [Concomitant]
     Active Substance: OLOPATADINE HYDROCHLORIDE
  2. ORALAIR [Suspect]
     Active Substance: ANTHOXANTHUM ODORATUM POLLEN\DACTYLIS GLOMERATA POLLEN\LOLIUM PERENNE POLLEN\PHLEUM PRATENSE POLLEN\POA PRATENSIS POLLEN
     Indication: SEASONAL ALLERGY
     Route: 060
     Dates: start: 20160302, end: 20160314

REACTIONS (5)
  - Heart rate increased [Recovered/Resolved]
  - Pharyngeal oedema [Recovered/Resolved]
  - Abdominal pain upper [Recovered/Resolved]
  - Tongue disorder [Recovered/Resolved]
  - Oesophageal oedema [Recovered/Resolved]

NARRATIVE: CASE EVENT DATE: 20160313
